FAERS Safety Report 24130127 (Version 3)
Quarter: 2024Q3

REPORT INFORMATION
  Report Type: Spontaneous
  Country: JP (occurrence: JP)
  Receive Date: 20240724
  Receipt Date: 20240916
  Transmission Date: 20241016
  Serious: Yes (Other)
  Sender: MERCK
  Company Number: JP-MSD-2407JPN003477J

PATIENT
  Age: 54 Year
  Sex: Female

DRUGS (2)
  1. KEYTRUDA [Suspect]
     Active Substance: PEMBROLIZUMAB
     Indication: Uterine cancer
     Dosage: UNK
     Route: 041
     Dates: start: 20230711, end: 20231109
  2. LENVATINIB MESYLATE [Suspect]
     Active Substance: LENVATINIB MESYLATE
     Indication: Uterine cancer
     Dosage: UNK
     Route: 048
     Dates: start: 20230711, end: 20231108

REACTIONS (1)
  - Acute myeloid leukaemia [Recovered/Resolved]

NARRATIVE: CASE EVENT DATE: 20231130
